FAERS Safety Report 11686034 (Version 2)
Quarter: 2016Q1

REPORT INFORMATION
  Report Type: Spontaneous
  Country: JP (occurrence: JP)
  Receive Date: 20151030
  Receipt Date: 20160126
  Transmission Date: 20160525
  Serious: Yes (Hospitalization, Other)
  Sender: FDA-Public Use
  Company Number: JP-TEVA-605351ISR

PATIENT
  Age: 63 Year
  Sex: Female

DRUGS (2)
  1. CISPLATIN. [Suspect]
     Active Substance: CISPLATIN
     Dosage: 75 MG/M2, DAY 1 EVERY FOUR WEEKS FOR TWO COURSES
  2. FLUOROURACIL. [Suspect]
     Active Substance: FLUOROURACIL
     Dosage: 1000 MG/M2, DAY 1-4 EVERY FOUR WEEKS FOR TWO COURSES

REACTIONS (1)
  - Oesophageal stenosis [Recovered/Resolved]
